FAERS Safety Report 8758784 (Version 1)
Quarter: 2012Q4

REPORT INFORMATION
  Report Type: 
  Country: US (occurrence: US)
  Receive Date: 20120829
  Receipt Date: 20120829
  Transmission Date: 20130627
  Serious: Yes (Disabling)
  Sender: FDA-Public Use
  Company Number: PHEH2012US013420

PATIENT
  Sex: Male

DRUGS (19)
  1. TASIGNA [Suspect]
     Indication: CHRONIC MYELOID LEUKAEMIA
     Route: 048
     Dates: start: 20100916, end: 20120529
  2. TASIGNA [Suspect]
     Route: 048
     Dates: start: 20120617
  3. TIMOLOL [Concomitant]
  4. XIBROM [Concomitant]
  5. BRIMONIDINE [Concomitant]
  6. PREDNISOLONE [Concomitant]
  7. METFORMIN [Concomitant]
     Dosage: 500 mg, BID
     Route: 048
  8. LISINOPRIL/HCTZ [Concomitant]
  9. XANAX [Concomitant]
     Dosage: 0.5 mg, TID
     Route: 048
  10. HUMALOG [Concomitant]
  11. LANTUS [Concomitant]
     Dosage: 80 U, UNK
  12. NORVASC [Concomitant]
     Dosage: 5 mg, QD
     Route: 048
  13. LOVAZA [Concomitant]
     Dosage: 1 g, BID
     Route: 048
  14. TRICOR [Concomitant]
     Dosage: 145 mg, daily
     Route: 048
  15. NEURONTIN [Concomitant]
  16. PRAVASTATIN [Concomitant]
  17. FISH OIL [Concomitant]
  18. OXYCONTIN [Concomitant]
  19. MS CONTIN [Concomitant]
     Dosage: 30 mg, BID
     Route: 048

REACTIONS (4)
  - Abdominal pain [Recovering/Resolving]
  - Bone pain [Recovering/Resolving]
  - Pain in extremity [Not Recovered/Not Resolved]
  - Arthralgia [Unknown]
